FAERS Safety Report 21746697 (Version 3)
Quarter: 2023Q2

REPORT INFORMATION
  Report Type: Spontaneous
  Country: CA (occurrence: CA)
  Receive Date: 20221219
  Receipt Date: 20230506
  Transmission Date: 20230721
  Serious: Yes (Death, Hospitalization, Other)
  Sender: FDA-Public Use
  Company Number: None

PATIENT
  Age: 18 Year
  Sex: Female
  Weight: 63 kg

DRUGS (13)
  1. QUETIAPINE FUMARATE [Suspect]
     Active Substance: QUETIAPINE FUMARATE
     Route: 048
  2. ACETAMINOPHEN [Suspect]
     Active Substance: ACETAMINOPHEN
     Route: 048
  3. ASPIRIN [Suspect]
     Active Substance: ASPIRIN
     Route: 065
  4. ASPIRIN [Suspect]
     Active Substance: ASPIRIN
     Indication: Product used for unknown indication
     Route: 048
  5. CITALOPRAM HYDROCHLORIDE [Suspect]
     Active Substance: CITALOPRAM HYDROCHLORIDE
     Indication: Product used for unknown indication
     Route: 065
  6. DIPHENHYDRAMINE [Suspect]
     Active Substance: DIPHENHYDRAMINE
     Indication: Product used for unknown indication
     Route: 065
  7. ALCOHOL [Suspect]
     Active Substance: ALCOHOL
     Indication: Product used for unknown indication
     Route: 048
  8. ISONIAZID [Suspect]
     Active Substance: ISONIAZID
     Indication: Product used for unknown indication
     Dosage: 1 EVERY 1 DAYS
     Route: 065
  9. PROPOFOL [Suspect]
     Active Substance: PROPOFOL
     Indication: Product used for unknown indication
     Route: 065
  10. ATOMOXETINE HYDROCHLORIDE [Concomitant]
     Active Substance: ATOMOXETINE HYDROCHLORIDE
     Indication: Product used for unknown indication
     Dosage: 1 EVERY 1 DAYS
     Route: 065
  11. QUETIAPINE FUMARATE [Suspect]
     Active Substance: QUETIAPINE FUMARATE
     Route: 048
  12. QUETIAPINE FUMARATE [Suspect]
     Active Substance: QUETIAPINE FUMARATE
     Route: 048
  13. CITALOPRAM HYDROCHLORIDE [Suspect]
     Active Substance: CITALOPRAM HYDROCHLORIDE
     Indication: Product used for unknown indication
     Dosage: 1 EVERY 1 DAYS
     Route: 065

REACTIONS (28)
  - Agitation [Fatal]
  - Atrial fibrillation [Fatal]
  - Cardiac arrest [Fatal]
  - Cardiac failure [Fatal]
  - Completed suicide [Fatal]
  - Congestive hepatopathy [Fatal]
  - Electrocardiogram ST segment elevation [Fatal]
  - Encephalopathy [Fatal]
  - Face oedema [Fatal]
  - Hepatic encephalopathy [Fatal]
  - Hepatic failure [Fatal]
  - Hepatitis [Fatal]
  - Intentional overdose [Fatal]
  - Liver injury [Fatal]
  - Multiple organ dysfunction syndrome [Fatal]
  - Myalgia [Fatal]
  - Myocarditis [Fatal]
  - Nausea [Fatal]
  - Oedema peripheral [Fatal]
  - Overdose [Fatal]
  - Oxygen saturation decreased [Fatal]
  - Pericardial effusion [Fatal]
  - Pleural effusion [Fatal]
  - Renal tubular necrosis [Fatal]
  - Seizure [Fatal]
  - Suicide attempt [Fatal]
  - Toxicity to various agents [Fatal]
  - Treatment noncompliance [Fatal]
